FAERS Safety Report 7967255-8 (Version None)
Quarter: 2011Q4

REPORT INFORMATION
  Report Type: 
  Country: None (occurrence: None)
  Receive Date: 20111209
  Receipt Date: 20111206
  Transmission Date: 20120403
  Serious: Yes (Life-Threatening)
  Sender: FDA-Public Use
  Company Number: JP-BRISTOL-MYERS SQUIBB COMPANY-16227134

PATIENT
  Age: 89 Year
  Sex: Female

DRUGS (16)
  1. CARVEDILOL [Suspect]
     Indication: CARDIAC FAILURE
     Dosage: 22APR11-27APR11(6DAYS) 2.5MG,27APR11-12MAY11(16DAYS)5MG
     Route: 048
     Dates: start: 20110422, end: 20110512
  2. OMEPRAZOLE [Concomitant]
  3. TICLOPIDINE HCL [Concomitant]
  4. FERROUS SULFATE TAB [Concomitant]
  5. DIGOXIN [Concomitant]
  6. ETICALM [Concomitant]
  7. ZOLPIDEM [Concomitant]
  8. BROTIZOLAM [Concomitant]
  9. LASIX [Concomitant]
  10. ALLOPURINOL [Concomitant]
  11. SPIRONOLACTONE [Concomitant]
  12. DYDRENE [Concomitant]
  13. ASPIRIN [Concomitant]
  14. AVAPRO [Suspect]
     Indication: ATRIAL FIBRILLATION
     Route: 048
     Dates: start: 20110429, end: 20110512
  15. AVAPRO [Suspect]
     Indication: CARDIAC FAILURE
     Route: 048
     Dates: start: 20110429, end: 20110512
  16. CARVEDILOL [Suspect]
     Indication: ATRIAL FIBRILLATION
     Dosage: 22APR11-27APR11(6DAYS) 2.5MG,27APR11-12MAY11(16DAYS)5MG
     Route: 048
     Dates: start: 20110422, end: 20110512

REACTIONS (1)
  - LICHEN PLANUS [None]
